FAERS Safety Report 15011014 (Version 1)
Quarter: 2018Q2

REPORT INFORMATION
  Report Type: Spontaneous
  Country: US (occurrence: US)
  Receive Date: 20180614
  Receipt Date: 20180614
  Transmission Date: 20180711
  Serious: Yes (Hospitalization, Other)
  Sender: FDA-Public Use
  Company Number: US-PFIZER INC-2018229196

PATIENT
  Age: 75 Year
  Sex: Female

DRUGS (7)
  1. MYCOPHENOLATE MOFETIL. [Suspect]
     Active Substance: MYCOPHENOLATE MOFETIL
     Indication: OCULAR PEMPHIGOID
     Dosage: 1000 MG, 2X/DAY
     Dates: start: 2015
  2. METHOTREXATE SODIUM. [Suspect]
     Active Substance: METHOTREXATE SODIUM
     Dosage: UNK (GRADUALLY DECREASED)
  3. METHOTREXATE SODIUM. [Suspect]
     Active Substance: METHOTREXATE SODIUM
     Indication: OCULAR PEMPHIGOID
     Dosage: 15 MG, WEEKLY
     Dates: start: 2015
  4. PREDNISONE. [Concomitant]
     Active Substance: PREDNISONE
     Indication: OCULAR PEMPHIGOID
     Dosage: 60 MG, DAILY
     Dates: start: 2015
  5. METHOTREXATE SODIUM. [Suspect]
     Active Substance: METHOTREXATE SODIUM
     Indication: PEMPHIGOID
     Dosage: 30 MG, WEEKLY (INCREASED)
  6. PREDNISONE. [Concomitant]
     Active Substance: PREDNISONE
     Indication: PEMPHIGOID
     Dosage: UNK (GRADUALLY DECREASED)
  7. MYCOPHENOLATE MOFETIL. [Suspect]
     Active Substance: MYCOPHENOLATE MOFETIL
     Indication: PEMPHIGOID

REACTIONS (12)
  - Nausea [Unknown]
  - Abdominal pain [Unknown]
  - Urinary tract infection [Unknown]
  - Conjunctivitis [Not Recovered/Not Resolved]
  - Ulcerative keratitis [Unknown]
  - Disease recurrence [Unknown]
  - Anaemia [Unknown]
  - Pneumonia [Unknown]
  - Rash [Unknown]
  - Alopecia [Unknown]
  - Drug ineffective [Unknown]
  - Decreased appetite [Unknown]
